FAERS Safety Report 15233276 (Version 2)
Quarter: 2018Q3

REPORT INFORMATION
  Report Type: Report from Study
  Country: US (occurrence: US)
  Receive Date: 20180802
  Receipt Date: 20180810
  Transmission Date: 20181010
  Serious: Yes (Hospitalization)
  Sender: FDA-Public Use
  Company Number: US-UCBSA-2017006956

PATIENT
  Age: 40 Year
  Sex: Male
  Weight: 86 kg

DRUGS (5)
  1. KEPPRA [Suspect]
     Active Substance: LEVETIRACETAM
     Indication: EPILEPSY
     Dosage: 1500 MG, 2X/DAY (BID)
     Route: 048
     Dates: end: 20180715
  2. LACOSAMIDE. [Suspect]
     Active Substance: LACOSAMIDE
     Indication: PARTIAL SEIZURES
     Dosage: 200 MG, 2X/DAY (BID)
     Route: 048
     Dates: end: 201807
  3. ALPRAZOLAM. [Concomitant]
     Active Substance: ALPRAZOLAM
     Indication: ANXIETY
     Dosage: 1 MG, 3X/DAY (TID)
     Route: 048
  4. DEPAKOTE [Concomitant]
     Active Substance: DIVALPROEX SODIUM
     Indication: PRODUCT USED FOR UNKNOWN INDICATION
  5. LACOSAMIDE. [Suspect]
     Active Substance: LACOSAMIDE
     Indication: EPILEPSY
     Dosage: 300 MG, 2X/DAY (BID)
     Dates: start: 20180803

REACTIONS (5)
  - Drug ineffective [Unknown]
  - Drug dose omission [Unknown]
  - Overdose [Unknown]
  - Off label use [Unknown]
  - Feeling abnormal [Recovered/Resolved]

NARRATIVE: CASE EVENT DATE: 20180711
